FAERS Safety Report 4893169-6 (Version None)
Quarter: 2005Q4

REPORT INFORMATION
  Report Type: 
  Country: None (occurrence: None)
  Receive Date: 20051223
  Receipt Date: 20050914
  Transmission Date: 20060501
  Serious: No
  Sender: FDA-Public Use
  Company Number: 2005PV002083

PATIENT
  Age: 60 Year
  Sex: Female
  Weight: 68.0396 kg

DRUGS (2)
  1. SYMLIN [Suspect]
     Indication: DIABETES MELLITUS INSULIN-DEPENDENT
     Dosage: 12 MCG; TID; SC
     Route: 058
     Dates: start: 20050824
  2. INSULIN PUMP [Concomitant]

REACTIONS (1)
  - INJECTION SITE ERYTHEMA [None]
